FAERS Safety Report 11311311 (Version 1)
Quarter: 2015Q3

REPORT INFORMATION
  Report Type: Spontaneous
  Country: IE (occurrence: None)
  Receive Date: 20150723
  Receipt Date: 20150723
  Transmission Date: 20151125
  Serious: Yes (Hospitalization, Other)
  Sender: FDA-Public Use
  Company Number: ADR-2015-01374

PATIENT
  Age: 5 Year
  Sex: Male

DRUGS (1)
  1. BACLOFEN INTRATHECAL [Suspect]
     Active Substance: BACLOFEN
     Indication: QUADRIPARESIS

REACTIONS (10)
  - Muscle contractions involuntary [None]
  - Dehydration [None]
  - Dystonia [None]
  - Prerenal failure [None]
  - Protrusion tongue [None]
  - Opisthotonus [None]
  - Pyrexia [None]
  - Urinary tract infection pseudomonal [None]
  - Gastroenteritis norovirus [None]
  - Hyperhidrosis [None]

NARRATIVE: CASE EVENT DATE: 20150101
